FAERS Safety Report 8005605-7 (Version None)
Quarter: 2011Q4

REPORT INFORMATION
  Report Type: 
  Country: None (occurrence: None)
  Receive Date: 20111223
  Receipt Date: 20111216
  Transmission Date: 20120403
  Serious: Yes (Hospitalization, Other)
  Sender: FDA-Public Use
  Company Number: GB-PFIZER INC-2010006430

PATIENT
  Age: 50 Year
  Sex: Female

DRUGS (1)
  1. ZYVOX [Suspect]
     Indication: WOUND INFECTION STAPHYLOCOCCAL
     Dosage: 600 MG, 2X/DAY
     Route: 048
     Dates: start: 20090201, end: 20091001

REACTIONS (29)
  - BONE MARROW FAILURE [None]
  - OFF LABEL USE [None]
  - PARAESTHESIA [None]
  - MOBILITY DECREASED [None]
  - VISION BLURRED [None]
  - ANAEMIA [None]
  - ASTHENIA [None]
  - BEDRIDDEN [None]
  - MIGRAINE [None]
  - HYPOAESTHESIA [None]
  - MALAISE [None]
  - WALKING AID USER [None]
  - PAIN [None]
  - MUSCLE SPASMS [None]
  - VASCULAR ACCESS COMPLICATION [None]
  - RENAL FAILURE [None]
  - BLINDNESS UNILATERAL [None]
  - VOCAL CORD PARALYSIS [None]
  - NEUROPATHY PERIPHERAL [None]
  - FEELING ABNORMAL [None]
  - WHITE BLOOD CELL COUNT DECREASED [None]
  - DRUG INEFFECTIVE [None]
  - BLOOD PRESSURE DECREASED [None]
  - LOSS OF BLADDER SENSATION [None]
  - IMMUNE SYSTEM DISORDER [None]
  - APHAGIA [None]
  - TONGUE DISCOLOURATION [None]
  - INFECTION [None]
  - GLOSSODYNIA [None]
